FAERS Safety Report 10918285 (Version 1)
Quarter: 2015Q1

REPORT INFORMATION
  Report Type: Spontaneous
  Country: US (occurrence: US)
  Receive Date: 20150316
  Receipt Date: 20150316
  Transmission Date: 20150721
  Serious: Yes (Other)
  Sender: FDA-Public Use
  Company Number: US-ASTELLAS-2015US000392

PATIENT
  Sex: Male

DRUGS (1)
  1. XTANDI [Suspect]
     Active Substance: ENZALUTAMIDE
     Indication: PROSTATE CANCER
     Route: 065
     Dates: start: 20141011, end: 20141229

REACTIONS (5)
  - Fatigue [Unknown]
  - Myalgia [Unknown]
  - Asthenia [Unknown]
  - Prostatic specific antigen increased [Unknown]
  - Diarrhoea [Unknown]
